FAERS Safety Report 11971752 (Version 2)
Quarter: 2016Q1

REPORT INFORMATION
  Report Type: Report from Study
  Country: JP (occurrence: JP)
  Receive Date: 20160128
  Receipt Date: 20160302
  Transmission Date: 20160526
  Serious: Yes (Hospitalization)
  Sender: FDA-Public Use
  Company Number: JP-OTSUKA-2016_002089

PATIENT
  Age: 44 Year
  Sex: Male
  Weight: 81.3 kg

DRUGS (6)
  1. AMLODIN [Concomitant]
     Active Substance: AMLODIPINE BESYLATE
     Indication: PRODUCT USED FOR UNKNOWN INDICATION
     Dosage: 10 MG, DAILY DOSE
     Route: 048
  2. TOLVAPTAN [Suspect]
     Active Substance: TOLVAPTAN
     Indication: CONGENITAL CYSTIC KIDNEY DISEASE
     Dosage: 30 MG, BID
     Route: 048
     Dates: start: 20150713, end: 20150928
  3. SODIUM FERROUS CITRATE [Concomitant]
     Active Substance: SODIUM FERROUS CITRATE
     Indication: RENAL CYST HAEMORRHAGE
     Dosage: 100 MG, DAILY DOSE
     Route: 048
     Dates: start: 20151218
  4. TOLVAPTAN [Suspect]
     Active Substance: TOLVAPTAN
     Dosage: 45 MG, BID
     Route: 048
     Dates: start: 20150929, end: 20160112
  5. BLOPRESS [Concomitant]
     Active Substance: CANDESARTAN CILEXETIL
     Indication: PRODUCT USED FOR UNKNOWN INDICATION
     Dosage: 8 MG, DAILY DOSE
     Route: 048
     Dates: start: 20150715
  6. ADONA (AC-17) [Concomitant]
     Indication: RENAL CYST HAEMORRHAGE
     Dosage: 10 MG, DAILY DOSE
     Route: 048
     Dates: start: 20151217

REACTIONS (1)
  - Renal cyst haemorrhage [Recovering/Resolving]

NARRATIVE: CASE EVENT DATE: 201512
